FAERS Safety Report 10250843 (Version 1)
Quarter: 2014Q2

REPORT INFORMATION
  Report Type: Spontaneous
  Country: US (occurrence: US)
  Receive Date: 20140620
  Receipt Date: 20140620
  Transmission Date: 20141212
  Serious: No
  Sender: FDA-Public Use
  Company Number: US-ASTRAZENECA-2014SE41377

PATIENT
  Sex: 0
  Weight: 69.9 kg

DRUGS (8)
  1. CRESTOR [Suspect]
     Route: 048
     Dates: start: 20140105
  2. XANAX [Concomitant]
  3. NORGESIC 40 [Concomitant]
  4. IPRATROPIUM BROMIDE/ALBUTEROL [Concomitant]
     Dosage: 1 PUFF FOUR TIMES DAILY
  5. ANTIPSYCHOTIC MEDICATIONS [Concomitant]
  6. HYDROCORTISONE CREAM 2.5% USP [Concomitant]
  7. FLUOCINONIDE [Concomitant]
  8. ULTRAM [Concomitant]

REACTIONS (1)
  - Chromaturia [Unknown]
